FAERS Safety Report 6480775-0 (Version None)
Quarter: 2009Q4

REPORT INFORMATION
  Report Type: 
  Country: None (occurrence: None)
  Receive Date: 20091208
  Receipt Date: 20091130
  Transmission Date: 20100525
  Serious: Yes (Death, Life-Threatening)
  Sender: FDA-Public Use
  Company Number: JP-SANOFI-AVENTIS-F01200900941

PATIENT
  Age: 81 Year
  Sex: Male
  Weight: 58 kg

DRUGS (21)
  1. CLOPIDOGREL BISULFATE [Suspect]
     Indication: ACUTE CORONARY SYNDROME
     Dosage: DOSE TEXT: STARTING DOSE
     Route: 048
     Dates: start: 20090422, end: 20090422
  2. CLOPIDOGREL BISULFATE [Suspect]
     Dosage: DOSE TEXT: STARTING DOSE
     Route: 048
     Dates: start: 20090422, end: 20090422
  3. CLOPIDOGREL BISULFATE [Suspect]
     Dosage: DOSE TEXT: MAINTENANCE DOSE
     Route: 048
     Dates: start: 20090423, end: 20090514
  4. CLOPIDOGREL BISULFATE [Suspect]
     Dosage: DOSE TEXT: MAINTENANCE DOSE
     Route: 048
     Dates: start: 20090423, end: 20090514
  5. ASPIRIN [Suspect]
     Route: 048
     Dates: start: 20090422, end: 20090422
  6. ASPIRIN [Suspect]
     Route: 048
     Dates: start: 20090423, end: 20090513
  7. HEPARIN [Suspect]
     Route: 042
     Dates: start: 20090422, end: 20090427
  8. PERSANTINE [Concomitant]
     Route: 048
     Dates: start: 20090424, end: 20090514
  9. TAKEPRON [Concomitant]
     Indication: PROPHYLAXIS
     Route: 042
     Dates: start: 20090422, end: 20090422
  10. TAKEPRON [Concomitant]
     Route: 048
     Dates: start: 20090423, end: 20090610
  11. HANP [Concomitant]
     Route: 065
     Dates: start: 20090422, end: 20090610
  12. PANSPORIN [Concomitant]
     Indication: PROPHYLAXIS
     Route: 042
     Dates: start: 20090422, end: 20090427
  13. PLETAL [Concomitant]
     Route: 048
     Dates: start: 20090422, end: 20090424
  14. ITOROL [Concomitant]
     Route: 065
     Dates: start: 20090422, end: 20090521
  15. SIGMART [Concomitant]
     Indication: PROPHYLAXIS
     Route: 048
     Dates: start: 20090423, end: 20090521
  16. ARTIST [Concomitant]
     Route: 048
     Dates: start: 20090423, end: 20090521
  17. BLOPRESS [Concomitant]
     Route: 048
     Dates: start: 20090423, end: 20090521
  18. CALBLOCK [Concomitant]
     Route: 048
     Dates: start: 20090424, end: 20090521
  19. DOBUTREX [Concomitant]
     Route: 042
     Dates: start: 20090504, end: 20090610
  20. PENTCILLIN [Concomitant]
     Route: 042
     Dates: start: 20090505, end: 20090524
  21. MODACIN [Concomitant]
     Route: 042
     Dates: start: 20090523, end: 20090524

REACTIONS (14)
  - ALANINE AMINOTRANSFERASE ABNORMAL [None]
  - ANAEMIA [None]
  - ARTERIAL HAEMORRHAGE [None]
  - ASPARTATE AMINOTRANSFERASE ABNORMAL [None]
  - BLOOD ALKALINE PHOSPHATASE ABNORMAL [None]
  - BLOOD BILIRUBIN ABNORMAL [None]
  - DIALYSIS [None]
  - GAMMA-GLUTAMYLTRANSFERASE ABNORMAL [None]
  - HAEMATOCRIT ABNORMAL [None]
  - HAEMOGLOBIN ABNORMAL [None]
  - HAEMORRHAGE CORONARY ARTERY [None]
  - OESOPHAGEAL ULCER HAEMORRHAGE [None]
  - PNEUMONIA [None]
  - RENAL FAILURE [None]
